FAERS Safety Report 8403181-8 (Version None)
Quarter: 2012Q2

REPORT INFORMATION
  Report Type: 
  Country: None (occurrence: None)
  Receive Date: 20120601
  Receipt Date: 20120525
  Transmission Date: 20120825
  Serious: Yes (Other)
  Sender: FDA-Public Use
  Company Number: CA-JNJFOC-20111210533

PATIENT
  Sex: Female
  Weight: 54.66 kg

DRUGS (9)
  1. PHENYLEPHRINE HYDROCHLORIDE [Suspect]
     Indication: INFLUENZA LIKE ILLNESS
     Route: 048
     Dates: start: 20111215, end: 20111215
  2. PHENYLEPHRINE HYDROCHLORIDE [Suspect]
     Indication: NASOPHARYNGITIS
     Route: 048
     Dates: start: 20111215, end: 20111215
  3. ACETAMINOPHEN [Suspect]
     Indication: NASOPHARYNGITIS
     Route: 065
     Dates: start: 20111215, end: 20111215
  4. PHENYLEPHRINE HCL [Suspect]
     Indication: NASOPHARYNGITIS
     Route: 048
     Dates: start: 20111215, end: 20111215
  5. PLACEBO [Suspect]
     Indication: NASOPHARYNGITIS
     Route: 048
     Dates: start: 20111115, end: 20111115
  6. ACETAMINOPHEN [Suspect]
     Indication: INFLUENZA LIKE ILLNESS
     Route: 065
     Dates: start: 20111215, end: 20111215
  7. ALESSE [Concomitant]
     Indication: CONTRACEPTION
     Route: 048
     Dates: start: 20110501, end: 20111217
  8. PHENYLEPHRINE HCL [Suspect]
     Indication: INFLUENZA LIKE ILLNESS
     Route: 048
     Dates: start: 20111215, end: 20111215
  9. PLACEBO [Suspect]
     Indication: INFLUENZA LIKE ILLNESS
     Route: 048
     Dates: start: 20111115, end: 20111115

REACTIONS (3)
  - MATERNAL EXPOSURE DURING PREGNANCY [None]
  - SMALL FOR DATES BABY [None]
  - PLACENTAL DISORDER [None]
